FAERS Safety Report 7701296-0 (Version None)
Quarter: 2011Q3

REPORT INFORMATION
  Report Type: 
  Country: None (occurrence: None)
  Receive Date: 20110819
  Receipt Date: 20110819
  Transmission Date: 20111222
  Serious: Yes (Hospitalization)
  Sender: FDA-Public Use
  Company Number: None

PATIENT
  Age: 72 Year
  Sex: Male

DRUGS (1)
  1. ASPIRIN, PLAVIX, PLET [Suspect]
     Dosage: 81 MG PO DAILY, 75 M
     Route: 048
     Dates: end: 20110529

REACTIONS (2)
  - RECTAL HAEMORRHAGE [None]
  - ANAEMIA [None]
